FAERS Safety Report 9791293 (Version 2)
Quarter: 2014Q1

REPORT INFORMATION
  Report Type: Spontaneous
  Country: US (occurrence: US)
  Receive Date: 20140101
  Receipt Date: 20140211
  Transmission Date: 20141002
  Serious: No
  Sender: FDA-Public Use
  Company Number: US-BIOGENIDEC-2013BI124382

PATIENT
  Sex: Female

DRUGS (1)
  1. TYSABRI [Suspect]
     Indication: MULTIPLE SCLEROSIS
     Route: 042
     Dates: start: 20080331, end: 20130731

REACTIONS (8)
  - Posture abnormal [Recovered/Resolved]
  - Hypopnoea [Unknown]
  - Dysarthria [Recovered/Resolved]
  - Cognitive disorder [Recovered/Resolved]
  - Coordination abnormal [Not Recovered/Not Resolved]
  - Visual acuity reduced [Recovered/Resolved]
  - Hypercapnia [Recovered/Resolved]
  - Carbon dioxide increased [Recovered/Resolved]
